FAERS Safety Report 5201617-7 (Version None)
Quarter: 2006Q4

REPORT INFORMATION
  Report Type: 
  Country: None (occurrence: None)
  Receive Date: 20061006
  Receipt Date: 20060908
  Transmission Date: 20070319
  Serious: Yes (Hospitalization)
  Sender: FDA-Public Use
  Company Number: 200614430BWH

PATIENT
  Age: 83 Year
  Sex: Male

DRUGS (6)
  1. CIPRO [Suspect]
     Indication: ARTHROPOD BITE
  2. CIPRO [Suspect]
     Indication: LOCALISED INFECTION
  3. COUMADIN [Suspect]
  4. BLOOD THINNERS [Suspect]
     Indication: DRUG USE FOR UNKNOWN INDICATION
  5. CIPRO IV [Suspect]
  6. ANTI-ARRHYTHMIC DRUG [Concomitant]

REACTIONS (3)
  - HAEMATOMA [None]
  - OEDEMA PERIPHERAL [None]
  - THERAPEUTIC AGENT TOXICITY [None]
